FAERS Safety Report 5793650-1 (Version None)
Quarter: 2008Q2

REPORT INFORMATION
  Report Type: 
  Country: None (occurrence: None)
  Receive Date: 20080627
  Receipt Date: 20080619
  Transmission Date: 20081010
  Serious: Yes (Other)
  Sender: FDA-Public Use
  Company Number: AU-SANOFI-SYNTHELABO-A01200806946

PATIENT
  Sex: Female

DRUGS (1)
  1. ZOLPIDEM TARTRATE [Suspect]
     Indication: DRUG ABUSE
     Dosage: APPROXIMATELY 80 TABLETS/DAY
     Route: 048

REACTIONS (2)
  - COMPULSIONS [None]
  - DRUG ABUSE [None]
